FAERS Safety Report 9968551 (Version 1)
Quarter: 2014Q1

REPORT INFORMATION
  Report Type: Spontaneous
  Country: US (occurrence: US)
  Receive Date: 20140306
  Receipt Date: 20140306
  Transmission Date: 20141002
  Serious: No
  Sender: FDA-Public Use
  Company Number: US-ABBVIE-13P-163-1142629-00

PATIENT
  Age: 42 Year
  Sex: Female
  Weight: 81.27 kg

DRUGS (6)
  1. HUMIRA [Suspect]
     Indication: PSORIATIC ARTHROPATHY
     Dates: start: 2012
  2. VITAMIN D [Concomitant]
     Indication: VITAMIN D DEFICIENCY
  3. CALCIUM +D [Concomitant]
     Indication: VITAMIN SUPPLEMENTATION
  4. ETODOLAC [Concomitant]
     Indication: PAIN
  5. VITAMIN D [Concomitant]
     Indication: VITAMIN D DEFICIENCY
  6. NEXIUM [Concomitant]
     Indication: GASTROOESOPHAGEAL REFLUX DISEASE

REACTIONS (5)
  - Inappropriate schedule of drug administration [Unknown]
  - Device malfunction [Recovered/Resolved]
  - Pain [Recovered/Resolved]
  - Musculoskeletal stiffness [Recovered/Resolved]
  - Musculoskeletal stiffness [Recovered/Resolved]
